FAERS Safety Report 23710096 (Version 2)
Quarter: 2024Q2

REPORT INFORMATION
  Report Type: Spontaneous
  Country: KR (occurrence: KR)
  Receive Date: 20240405
  Receipt Date: 20240529
  Transmission Date: 20240717
  Serious: Yes (Other)
  Sender: FDA-Public Use
  Company Number: KR-KYOWAKIRIN-2024KK005882

PATIENT
  Age: 54 Year
  Sex: Male

DRUGS (12)
  1. DARBEPOETIN ALFA [Suspect]
     Active Substance: DARBEPOETIN ALFA
     Indication: Anaemia
     Dosage: 120MCG, 1X/WEEK
     Route: 058
     Dates: start: 20221109, end: 20230325
  2. DARBEPOETIN ALFA [Suspect]
     Active Substance: DARBEPOETIN ALFA
     Dosage: 120MCG, 1X/WEEK
     Route: 042
     Dates: start: 20230422, end: 20230603
  3. DARBEPOETIN ALFA [Suspect]
     Active Substance: DARBEPOETIN ALFA
     Dosage: 60MCG, 1X/WEEK
     Route: 042
     Dates: start: 20230624, end: 20231104
  4. DARBEPOETIN ALFA [Suspect]
     Active Substance: DARBEPOETIN ALFA
     Dosage: 120MCG, 1X/WEEK
     Route: 042
     Dates: start: 20231111, end: 20240217
  5. NEPHVITA [Concomitant]
     Indication: Vitamin supplementation
     Dosage: 60 MG, QD
     Route: 048
     Dates: start: 20230114
  6. FERROUS SULFATE\PROTEASE [Concomitant]
     Active Substance: FERROUS SULFATE\PROTEASE
     Indication: Anaemia
     Dosage: 256 MG, QD
     Route: 048
     Dates: start: 20221109
  7. ASPIRIN [Concomitant]
     Active Substance: ASPIRIN
     Indication: Prophylaxis
     Dosage: 100 MG, QD
     Route: 048
     Dates: start: 20180109
  8. AMLODIPINE OROTATE [Concomitant]
     Active Substance: AMLODIPINE OROTATE
     Indication: Hypertension
     Dosage: 5 MG, QD
     Route: 048
     Dates: start: 20230425
  9. EZETIMIBE\ROSUVASTATIN [Concomitant]
     Active Substance: EZETIMIBE\ROSUVASTATIN
     Indication: Hyperlipidaemia
     Dosage: 10/5MG, QD
     Route: 048
     Dates: start: 20230425
  10. DIOVAN [Concomitant]
     Active Substance: VALSARTAN
     Indication: Hypertension
     Dosage: 80 MG, QD
     Route: 048
     Dates: start: 20230425
  11. TEGOPRAZAN [Concomitant]
     Active Substance: TEGOPRAZAN
     Indication: Product used for unknown indication
     Dosage: UNK
     Route: 065
  12. Venoferrum [Concomitant]
     Indication: Product used for unknown indication
     Dosage: UNK
     Route: 042

REACTIONS (1)
  - Anaemia [Not Recovered/Not Resolved]

NARRATIVE: CASE EVENT DATE: 20240206
